FAERS Safety Report 13092522 (Version 1)
Quarter: 2017Q1

REPORT INFORMATION
  Report Type: Spontaneous
  Country: US (occurrence: US)
  Receive Date: 20170106
  Receipt Date: 20170106
  Transmission Date: 20170428
  Serious: No
  Sender: FDA-Public Use
  Company Number: US-JNJFOC-20161129887

PATIENT
  Age: 85 Year
  Sex: Female
  Weight: 36.29 kg

DRUGS (1)
  1. TYLENOL EXTRA STRENGTH [Suspect]
     Active Substance: ACETAMINOPHEN
     Indication: ARTHRALGIA
     Dosage: ONCE A DAY
     Route: 048

REACTIONS (2)
  - Incorrect drug administration duration [Unknown]
  - Extra dose administered [Unknown]
